FAERS Safety Report 19251941 (Version 1)
Quarter: 2021Q2

REPORT INFORMATION
  Report Type: Spontaneous
  Country: US (occurrence: US)
  Receive Date: 20210513
  Receipt Date: 20210513
  Transmission Date: 20210717
  Serious: No
  Sender: FDA-Public Use
  Company Number: US-ASTRAZENECA-2021A351705

PATIENT
  Age: 786 Month
  Sex: Male
  Weight: 54.4 kg

DRUGS (1)
  1. LYNPARZA [Suspect]
     Active Substance: OLAPARIB
     Dosage: 100 MG,TWO TABLETS IN THE MORNING, TWO TABLETS IN THE EVENING
     Route: 048
     Dates: start: 202103

REACTIONS (2)
  - Dysphagia [Unknown]
  - Aspiration [Unknown]

NARRATIVE: CASE EVENT DATE: 202104
